FAERS Safety Report 4986479-5 (Version None)
Quarter: 2006Q2

REPORT INFORMATION
  Report Type: 
  Country: None (occurrence: None)
  Receive Date: 20060428
  Receipt Date: 20050928
  Transmission Date: 20061013
  Serious: Yes (Hospitalization, Disabling)
  Sender: FDA-Public Use
  Company Number: US-ROCHE-419585

PATIENT
  Age: 15 Year
  Sex: Male
  Weight: 65.8 kg

DRUGS (1)
  1. ACCUTANE [Suspect]
     Route: 048
     Dates: start: 19931119, end: 19940421

REACTIONS (51)
  - ABDOMINAL PAIN UPPER [None]
  - ANGINA PECTORIS [None]
  - ANXIETY [None]
  - ARTHRALGIA [None]
  - ARTHRITIS [None]
  - BACK PAIN [None]
  - BLOOD GLUCOSE INCREASED [None]
  - BODY TINEA [None]
  - BONE PAIN [None]
  - BRONCHITIS [None]
  - CHEILITIS [None]
  - CHEST PAIN [None]
  - CHILLS [None]
  - CHRONIC FATIGUE SYNDROME [None]
  - COLITIS [None]
  - CROHN'S DISEASE [None]
  - DRUG INEFFECTIVE [None]
  - DRY EYE [None]
  - ECONOMIC PROBLEM [None]
  - EMOTIONAL DISORDER [None]
  - ERECTILE DYSFUNCTION [None]
  - ESCHERICHIA INFECTION [None]
  - GASTRITIS [None]
  - GASTROINTESTINAL DISORDER [None]
  - HAEMATOCRIT DECREASED [None]
  - HAEMOGLOBIN DECREASED [None]
  - HAND FRACTURE [None]
  - HEADACHE [None]
  - ILEITIS [None]
  - INFLAMMATORY BOWEL DISEASE [None]
  - INJURY [None]
  - INTESTINAL HAEMORRHAGE [None]
  - MAJOR DEPRESSION [None]
  - MOOD SWINGS [None]
  - MULTI-ORGAN DISORDER [None]
  - NIGHTMARE [None]
  - PAIN IN EXTREMITY [None]
  - PANIC ATTACK [None]
  - PARTNER STRESS [None]
  - PHARYNGOLARYNGEAL PAIN [None]
  - PYELONEPHRITIS [None]
  - RECTAL HAEMORRHAGE [None]
  - RED BLOOD CELL COUNT DECREASED [None]
  - STRESS [None]
  - SUICIDAL IDEATION [None]
  - SUNBURN [None]
  - TOOTHACHE [None]
  - UPPER RESPIRATORY TRACT INFECTION [None]
  - VICTIM OF CRIME [None]
  - WEIGHT GAIN POOR [None]
  - XEROSIS [None]
